FAERS Safety Report 7573229-1 (Version None)
Quarter: 2011Q2

REPORT INFORMATION
  Report Type: 
  Country: None (occurrence: None)
  Receive Date: 20110627
  Receipt Date: 20110623
  Transmission Date: 20111010
  Serious: Yes (Death, Hospitalization, Other)
  Sender: FDA-Public Use
  Company Number: GB-PFIZER INC-2011139714

PATIENT
  Age: 46 Year
  Sex: Female

DRUGS (1)
  1. LYRICA [Suspect]
     Indication: NEURALGIA
     Dosage: UNK
     Dates: start: 20110601

REACTIONS (5)
  - CARDIAC FAILURE CONGESTIVE [None]
  - DEATH [None]
  - HYPOXIA [None]
  - TACHYCARDIA [None]
  - DYSPNOEA [None]
